FAERS Safety Report 8994410 (Version 1)
Quarter: 2012Q4

REPORT INFORMATION
  Report Type: Spontaneous
  Country: US (occurrence: None)
  Receive Date: 20121228
  Receipt Date: 20121228
  Transmission Date: 20130627
  Serious: Yes (Other)
  Sender: FDA-Public Use
  Company Number: None

PATIENT
  Sex: Female
  Weight: 76.4 kg

DRUGS (2)
  1. SERTRALINE HCL [Suspect]
     Indication: POST-TRAUMATIC STRESS DISORDER
     Route: 048
     Dates: start: 20121025, end: 20121129
  2. PROLONGED EXPOSURE (CBT) [Concomitant]

REACTIONS (11)
  - Nausea [None]
  - Constipation [None]
  - Vision blurred [None]
  - Headache [None]
  - Somnolence [None]
  - Poor quality sleep [None]
  - Memory impairment [None]
  - Sexual dysfunction [None]
  - Muscle twitching [None]
  - Dysgeusia [None]
  - Hepatic enzyme increased [None]
